FAERS Safety Report 8179236-2 (Version None)
Quarter: 2012Q1

REPORT INFORMATION
  Report Type: 
  Country: None (occurrence: None)
  Receive Date: 20120229
  Receipt Date: 20120229
  Transmission Date: 20120608
  Serious: No
  Sender: FDA-Public Use
  Company Number: None

PATIENT
  Age: 73 Year
  Sex: Female
  Weight: 90.9 kg

DRUGS (1)
  1. ATORVASTATIN [Suspect]
     Indication: DIABETES MELLITUS
     Dosage: ATORVASTATIN 5MG DAILY DAILY PO FOR C. 10Y PRIOR TO EPISODE
     Route: 048

REACTIONS (3)
  - DYSSTASIA [None]
  - GAIT DISTURBANCE [None]
  - MYOSITIS [None]
